FAERS Safety Report 6985044 (Version 2)
Quarter: 2018Q1

REPORT INFORMATION
  Report Type: Spontaneous
  Country: IT (occurrence: IT)
  Receive Date: 20090504
  Receipt Date: 20180220
  Transmission Date: 20180509
  Serious: Yes (Life-Threatening, Hospitalization, Other)
  Sender: FDA-Public Use
  Company Number: IT-JNJFOC-20090406611

PATIENT
  Age: 5 Year
  Sex: Female
  Weight: 19.4 kg

DRUGS (5)
  1. ACETAMINOPHEN. [Suspect]
     Active Substance: ACETAMINOPHEN
     Indication: PYREXIA
     Dosage: 5 MG/KG/DOSE EVERY 8 HOURS TIMES 3 DOSES TOTAL11 MG/KG, UNK (2 TOTAL DOSES OVER 5H); AS REQUIRED
     Route: 048
  2. DIAZEPAM. [Concomitant]
     Active Substance: DIAZEPAM
     Indication: FEBRILE CONVULSION
     Route: 054
  3. ACETAMINOPHEN. [Suspect]
     Active Substance: ACETAMINOPHEN
     Route: 048
  4. ORAL REHYDRATION SALT [Concomitant]
     Indication: DEHYDRATION
     Route: 048
  5. IBUPROFEN. [Suspect]
     Active Substance: IBUPROFEN
     Indication: PYREXIA
     Dosage: 5 MG/KG, TID (THREE TOTAL DOSES); AS REQUIRED
     Route: 048

REACTIONS (3)
  - Hypertension [Recovered/Resolved]
  - Acute kidney injury [Recovering/Resolving]
  - Hepatitis cholestatic [Recovering/Resolving]
